FAERS Safety Report 5003937-8 (Version None)
Quarter: 2006Q2

REPORT INFORMATION
  Report Type: 
  Country: None (occurrence: None)
  Receive Date: 20060517
  Receipt Date: 20060509
  Transmission Date: 20061013
  Serious: Yes (Other)
  Sender: FDA-Public Use
  Company Number: US-SANOFI-SYNTHELABO-A03200602938

PATIENT
  Age: 60 Year
  Sex: Female

DRUGS (1)
  1. AMBIEN [Suspect]
     Indication: INSOMNIA
     Dosage: 3-5 TIMES /WEEK
     Route: 048
     Dates: start: 20040101, end: 20060301

REACTIONS (5)
  - ABNORMAL BEHAVIOUR [None]
  - BINGE EATING [None]
  - FALL [None]
  - RETINAL DETACHMENT [None]
  - SLEEP WALKING [None]
